FAERS Safety Report 10153449 (Version 1)
Quarter: 2014Q2

REPORT INFORMATION
  Report Type: Spontaneous
  Country: US (occurrence: US)
  Receive Date: 20140505
  Receipt Date: 20140505
  Transmission Date: 20141212
  Serious: Yes (Other)
  Sender: FDA-Public Use
  Company Number: US-TEVA-478893USA

PATIENT
  Age: 37 Year
  Sex: Female
  Weight: 50.85 kg

DRUGS (1)
  1. TAKE ACTION [Suspect]
     Indication: POST COITAL CONTRACEPTION
     Dosage: 1.5 MILLIGRAM DAILY;
     Route: 048
     Dates: start: 20140415, end: 20140415

REACTIONS (5)
  - Pregnancy after post coital contraception [Unknown]
  - Abdominal pain lower [Not Recovered/Not Resolved]
  - Metrorrhagia [Recovered/Resolved]
  - Breast pain [Not Recovered/Not Resolved]
  - Exposure during pregnancy [Unknown]
